FAERS Safety Report 24670093 (Version 5)
Quarter: 2025Q1

REPORT INFORMATION
  Report Type: Spontaneous
  Country: US (occurrence: US)
  Receive Date: 20241127
  Receipt Date: 20250328
  Transmission Date: 20250409
  Serious: Yes (Other)
  Sender: BRISTOL-MYERS SQUIBB COMPANY
  Company Number: US-BRISTOL-MYERS SQUIBB COMPANY-2024-185300

PATIENT
  Age: 79 Year
  Sex: Male

DRUGS (2)
  1. POMALYST [Suspect]
     Active Substance: POMALIDOMIDE
     Indication: Plasma cell myeloma recurrent
     Dosage: TAKE 1 CAPSULE BY MOUTH EVERY DAY/TAKE 1 CAPSULE BY MOUTH ONCE A DAY FOR 21 DAYS THEN 7 DAYS OFF EVE
     Route: 048
  2. POMALYST [Suspect]
     Active Substance: POMALIDOMIDE
     Dosage: TAKE 1 CAPSULE BY MOUTH EVERY DAY FOR 21 DAYS THEN 7 DAYS OFF EVERY 28 DAYS
     Route: 048

REACTIONS (5)
  - Nerve compression [Recovering/Resolving]
  - Therapy interrupted [Unknown]
  - Product prescribing error [Unknown]
  - Product use issue [Unknown]
  - Deep vein thrombosis [Not Recovered/Not Resolved]
